FAERS Safety Report 5330675-4 (Version None)
Quarter: 2007Q2

REPORT INFORMATION
  Report Type: 
  Country: None (occurrence: None)
  Receive Date: 20070522
  Receipt Date: 20070508
  Transmission Date: 20071010
  Serious: Yes (Hospitalization)
  Sender: FDA-Public Use
  Company Number: PHHO2007DE07825

PATIENT
  Age: 32 Year
  Sex: Male

DRUGS (1)
  1. CYCLOSPORINE [Suspect]
     Indication: LIVER TRANSPLANT
     Dosage: 150 MG, QD
     Route: 048
     Dates: start: 20061218

REACTIONS (2)
  - LUNG DISORDER [None]
  - RENAL FAILURE [None]
